FAERS Safety Report 11105347 (Version 2)
Quarter: 2015Q2

REPORT INFORMATION
  Report Type: Report from Study
  Country: DE (occurrence: DE)
  Receive Date: 20150512
  Receipt Date: 20150527
  Transmission Date: 20150821
  Serious: Yes (Death, Hospitalization, Other)
  Sender: FDA-Public Use
  Company Number: DE-GILEAD-2015-0152801

PATIENT
  Age: 61 Year
  Sex: Male
  Weight: 71 kg

DRUGS (16)
  1. SPIRONOLACTON [Concomitant]
     Active Substance: SPIRONOLACTONE
     Dosage: 100 UNKNOWN, QD
     Route: 065
     Dates: start: 20140611, end: 20140925
  2. DOCITON [Concomitant]
     Active Substance: PROPRANOLOL HYDROCHLORIDE
     Dosage: 10 UNKNOWN, TID
     Route: 065
     Dates: end: 20141116
  3. TRAZODON NEURAXPHARM [Concomitant]
     Dosage: UNK UNKNOWN, UNK
     Dates: start: 20141022
  4. TOREM                              /01036501/ [Concomitant]
     Active Substance: TORSEMIDE
     Dosage: 10 UNKNOWN, QD
     Route: 065
     Dates: start: 20140926, end: 20141116
  5. DACLATASVIR [Suspect]
     Active Substance: DACLATASVIR
     Indication: CHRONIC HEPATITIS C
     Dosage: 60 MG, QD
     Route: 048
     Dates: start: 20140529, end: 20141112
  6. PANTOPRAZOLE [Concomitant]
     Active Substance: PANTOPRAZOLE SODIUM
     Dosage: 40 UNKNOWN, QD
     Route: 065
  7. TOREM                              /01036501/ [Concomitant]
     Active Substance: TORSEMIDE
     Dosage: 5 UNKNOWN, QD
     Route: 065
     Dates: start: 20140611, end: 20140925
  8. CARVEDILOL. [Concomitant]
     Active Substance: CARVEDILOL
     Dosage: 12.5 UNKNOWN, QD
     Route: 065
     Dates: start: 20141117
  9. SPIRONOLACTON [Concomitant]
     Active Substance: SPIRONOLACTONE
     Indication: CHRONIC HEPATITIS C
     Dosage: 50 UNKNOWN, QD
     Route: 065
     Dates: end: 20140610
  10. STILNOX [Concomitant]
     Active Substance: ZOLPIDEM TARTRATE
     Indication: CHRONIC HEPATITIS C
     Route: 065
  11. ATARAX [Concomitant]
     Active Substance: HYDROXYZINE\HYDROXYZINE HYDROCHLORIDE
     Indication: CHRONIC HEPATITIS C
     Dosage: UNK
     Route: 065
     Dates: start: 20140818
  12. SPIRONOLACTON [Concomitant]
     Active Substance: SPIRONOLACTONE
     Dosage: 200 UNKNOWN, QD
     Route: 065
     Dates: start: 20140926
  13. TOREM                              /01036501/ [Concomitant]
     Active Substance: TORSEMIDE
     Indication: CHRONIC HEPATITIS C
     Dosage: 2.5 UNKNOWN, QD
     Route: 065
     Dates: end: 20140610
  14. TOREM                              /01036501/ [Concomitant]
     Active Substance: TORSEMIDE
     Dosage: 5 UNKNOWN, QD
     Route: 065
     Dates: start: 20141117
  15. SOFOSBUVIR [Suspect]
     Active Substance: SOFOSBUVIR
     Indication: CHRONIC HEPATITIS C
     Dosage: 400 MG, QD
     Route: 048
     Dates: start: 20140529, end: 20141112
  16. RIBAVIRIN. [Suspect]
     Active Substance: RIBAVIRIN
     Indication: CHRONIC HEPATITIS C
     Dosage: 1000 MG, QD
     Route: 048
     Dates: start: 20140529, end: 20141112

REACTIONS (2)
  - Hepatic failure [Fatal]
  - Ascites [Fatal]

NARRATIVE: CASE EVENT DATE: 20150105
